FAERS Safety Report 10255215 (Version 1)
Quarter: 2014Q2

REPORT INFORMATION
  Report Type: Spontaneous
  Country: AW (occurrence: AW)
  Receive Date: 20140624
  Receipt Date: 20140624
  Transmission Date: 20141212
  Serious: Yes (Other)
  Sender: FDA-Public Use
  Company Number: AW-TEVA-489564ISR

PATIENT
  Age: 26 Year
  Sex: Male

DRUGS (10)
  1. COLCHICINE PCH TABLET 0,5MG [Suspect]
     Dosage: 1 MILLIGRAM DAILY;
  2. AMIODARONE [Interacting]
     Dosage: 200 MILLIGRAM DAILY;
     Route: 042
  3. BETAHISTINE [Interacting]
     Indication: DIZZINESS
  4. FUROSEMIDE [Interacting]
  5. METOPROLOL [Interacting]
     Dosage: 200 MILLIGRAM DAILY;
  6. PARACETAMOL [Interacting]
  7. NEXIUM [Concomitant]
  8. PROCORALAN [Concomitant]
  9. COVERSYL [Concomitant]
     Dosage: ONCE
  10. IMOVANE [Concomitant]
     Dosage: FOR THE NIGHT

REACTIONS (7)
  - Ventricular tachycardia [Not Recovered/Not Resolved]
  - General physical health deterioration [Not Recovered/Not Resolved]
  - Blood count abnormal [Not Recovered/Not Resolved]
  - Platelet count increased [Not Recovered/Not Resolved]
  - Liver function test abnormal [Not Recovered/Not Resolved]
  - Diarrhoea [Not Recovered/Not Resolved]
  - Drug interaction [None]
